FAERS Safety Report 9105926 (Version 2)
Quarter: 2013Q1

REPORT INFORMATION
  Report Type: Spontaneous
  Country: FI (occurrence: FI)
  Receive Date: 20130221
  Receipt Date: 20130305
  Transmission Date: 20140127
  Serious: Yes (Life-Threatening, Hospitalization, Disabling)
  Sender: FDA-Public Use
  Company Number: FI-B.I. PHARMACEUTICALS,INC./RIDGEFIELD-2013-SW-00102SF

PATIENT
  Age: 78 Year
  Sex: Female

DRUGS (8)
  1. PRADAXA [Suspect]
     Indication: THROMBOSIS PROPHYLAXIS
     Dosage: 150 MG
     Route: 048
     Dates: start: 20130125, end: 201302
  2. PRADAXA [Suspect]
     Indication: ATRIAL FIBRILLATION
  3. DIUREX [Concomitant]
     Dosage: 1/2 -1 ONCE DAILY
     Route: 048
  4. ORLOC [Concomitant]
     Dosage: 10 MG
     Route: 048
  5. THYROXIN [Concomitant]
     Dosage: 25 MCG
     Route: 048
  6. ATACAND [Concomitant]
     Dosage: 8 MG
     Route: 048
  7. FLIXOTIDE EVOHALER [Concomitant]
     Dosage: FORM: EVOHALER, DOSE: 2X2
  8. SEREVENT DISCUS [Concomitant]
     Dosage: 100 MCG

REACTIONS (5)
  - Cerebral infarction [Not Recovered/Not Resolved]
  - Off label use [Not Recovered/Not Resolved]
  - Aphasia [Not Recovered/Not Resolved]
  - Hemiplegia [Not Recovered/Not Resolved]
  - Aphasia [Not Recovered/Not Resolved]
